FAERS Safety Report 5513019-4 (Version None)
Quarter: 2007Q4

REPORT INFORMATION
  Report Type: 
  Country: None (occurrence: None)
  Receive Date: 20071108
  Receipt Date: 20071023
  Transmission Date: 20080405
  Serious: Yes (Other)
  Sender: FDA-Public Use
  Company Number: B0493776A

PATIENT
  Sex: Female

DRUGS (6)
  1. BUSULPHAN (FORMULATION UNKNOWN) (GENERIC) (BUSULFAN) [Suspect]
     Indication: CORD BLOOD TRANSPLANT THERAPY
  2. CYCLOPHOSPHAMIDE [Suspect]
     Indication: CORD BLOOD TRANSPLANT THERAPY
  3. ETOPOSIDE [Suspect]
     Indication: CORD BLOOD TRANSPLANT THERAPY
  4. CYCLOSPORINE [Suspect]
     Indication: PROPHYLAXIS AGAINST TRANSPLANT REJECTION
  5. METHOTREXATE [Suspect]
     Indication: PROPHYLAXIS AGAINST TRANSPLANT REJECTION
  6. DEXAMETHASONE [Suspect]
     Indication: LYMPHOHISTIOCYTOSIS

REACTIONS (3)
  - ACUTE GRAFT VERSUS HOST DISEASE [None]
  - DEAFNESS NEUROSENSORY [None]
  - SPEECH DISORDER DEVELOPMENTAL [None]
